FAERS Safety Report 9067788 (Version 1)
Quarter: 2013Q1

REPORT INFORMATION
  Report Type: Spontaneous
  Country: US (occurrence: US)
  Receive Date: 20130214
  Receipt Date: 20130214
  Transmission Date: 20140127
  Serious: Yes (Hospitalization)
  Sender: FDA-Public Use
  Company Number: US-MYLANLABS-2013S1002573

PATIENT
  Age: 49 Year
  Sex: Male
  Weight: 63 kg

DRUGS (2)
  1. LEVETIRACETAM [Suspect]
     Indication: SUICIDE ATTEMPT
     Route: 048
  2. LEVETIRACETAM [Suspect]
     Indication: SUICIDE ATTEMPT
     Route: 065

REACTIONS (4)
  - Intentional overdose [Recovered/Resolved]
  - Suicide attempt [Recovered/Resolved]
  - PCO2 decreased [Recovered/Resolved]
  - Blood urea decreased [Recovered/Resolved]
